FAERS Safety Report 12278981 (Version 2)
Quarter: 2016Q2

REPORT INFORMATION
  Report Type: Spontaneous
  Country: US (occurrence: US)
  Receive Date: 20160418
  Receipt Date: 20160516
  Transmission Date: 20160815
  Serious: Yes (Hospitalization, Other)
  Sender: FDA-Public Use
  Company Number: US-ELI_LILLY_AND_COMPANY-US201604002458

PATIENT
  Age: 62 Year
  Sex: Male

DRUGS (5)
  1. DEXAMETHASONE. [Concomitant]
     Active Substance: DEXAMETHASONE
     Dosage: 8 MG, OTHER
     Route: 048
  2. FOLIC ACID. [Concomitant]
     Active Substance: FOLIC ACID
     Dosage: 1 G, UNKNOWN
     Route: 065
     Dates: start: 20160304
  3. ALIMTA [Suspect]
     Active Substance: PEMETREXED DISODIUM
     Indication: GASTROINTESTINAL STROMAL CANCER
     Dosage: 780 MG, CYCLICAL
     Route: 042
     Dates: start: 20160310
  4. ALIMTA [Suspect]
     Active Substance: PEMETREXED DISODIUM
     Indication: THYMIC CANCER METASTATIC
  5. VITAMIN B12 [Concomitant]
     Active Substance: CYANOCOBALAMIN
     Dosage: 1000 UG, UNKNOWN
     Route: 065
     Dates: start: 20160304

REACTIONS (3)
  - Blister [Recovering/Resolving]
  - Rash papular [Recovering/Resolving]
  - Cellulitis [Recovering/Resolving]
